FAERS Safety Report 7419083-X (Version None)
Quarter: 2011Q2

REPORT INFORMATION
  Report Type: 
  Country: None (occurrence: None)
  Receive Date: 20110415
  Receipt Date: 20110413
  Transmission Date: 20111010
  Serious: Yes (Life-Threatening, Hospitalization, Other)
  Sender: FDA-Public Use
  Company Number: JP-PFIZER INC-2011034734

PATIENT
  Age: 59 Year
  Sex: Male
  Weight: 61.8 kg

DRUGS (8)
  1. MUCOSTA [Concomitant]
     Dosage: 100 MG, 3X/DAY
     Route: 048
  2. DEPAS [Concomitant]
     Dosage: 0.5 MG, A DAY
     Route: 048
  3. LYRICA [Suspect]
     Indication: NEURALGIA
     Dosage: 300 MG DAILY
     Route: 048
     Dates: start: 20110101, end: 20110215
  4. BACLOFEN [Concomitant]
     Dosage: 10 MG, 3X/DAY
     Route: 048
  5. LOXONIN [Concomitant]
     Dosage: 60 MG, 3X/DAY
     Route: 048
  6. MAGNESIUM OXIDE [Concomitant]
     Dosage: 250 MG, 3X/DAY
     Route: 048
  7. METHYCOBAL [Concomitant]
     Dosage: 500 UG, 3X/DAY
     Route: 048
  8. MYSLEE [Concomitant]
     Dosage: 5 MG, 2X/DAY
     Route: 048

REACTIONS (5)
  - HAEMATURIA [None]
  - BLOOD PRESSURE DECREASED [None]
  - SEPTIC SHOCK [None]
  - MUSCLE TIGHTNESS [None]
  - DYSARTHRIA [None]
